FAERS Safety Report 18459640 (Version 1)
Quarter: 2020Q4

REPORT INFORMATION
  Report Type: Spontaneous
  Country: US (occurrence: US)
  Receive Date: 20201103
  Receipt Date: 20201103
  Transmission Date: 20210114
  Serious: No
  Sender: FDA-Public Use
  Company Number: US-AMAG PHARMACEUTICALS, INC.-AMAG202003643

PATIENT
  Age: 38 Year
  Sex: Female
  Weight: 64.92 kg

DRUGS (1)
  1. MAKENA [Suspect]
     Active Substance: HYDROXYPROGESTERONE CAPROATE
     Indication: PREMATURE DELIVERY
     Dosage: RECEIVING WEEKLY.
     Route: 058

REACTIONS (7)
  - Skin haemorrhage [Not Recovered/Not Resolved]
  - Injection site mass [Not Recovered/Not Resolved]
  - Injection site extravasation [Unknown]
  - Injection site pain [Not Recovered/Not Resolved]
  - Scab [Not Recovered/Not Resolved]
  - Underdose [Recovered/Resolved]
  - Injection site pruritus [Not Recovered/Not Resolved]
